FAERS Safety Report 21080704 (Version 1)
Quarter: 2022Q3

REPORT INFORMATION
  Report Type: Spontaneous
  Country: US (occurrence: US)
  Receive Date: 20220714
  Receipt Date: 20220714
  Transmission Date: 20221026
  Serious: No
  Sender: FDA-Public Use
  Company Number: US-RECKITT BENCKISER HEALTHCARE INT LIMITED-RB-99493-2021

PATIENT
  Age: 89 Year
  Sex: Male

DRUGS (1)
  1. MUCINEX DM MAXIMUM STRENGTH [Suspect]
     Active Substance: DEXTROMETHORPHAN HYDROBROMIDE\GUAIFENESIN
     Indication: Product used for unknown indication
     Dosage: 1 DOSAGE FORM, QD
     Route: 048
     Dates: start: 2021, end: 202111

REACTIONS (6)
  - Hypertension [Unknown]
  - Cough [Recovering/Resolving]
  - Vomiting [Recovering/Resolving]
  - Eructation [Recovering/Resolving]
  - Foreign body in throat [Recovering/Resolving]
  - Product size issue [Unknown]

NARRATIVE: CASE EVENT DATE: 20210101
